FAERS Safety Report 9002686 (Version 2)
Quarter: 2013Q3

REPORT INFORMATION
  Report Type: Spontaneous
  Country: US (occurrence: US)
  Receive Date: 20130107
  Receipt Date: 20130705
  Transmission Date: 20140515
  Serious: No
  Sender: FDA-Public Use
  Company Number: US-GLAXOSMITHKLINE-A0950649A

PATIENT
  Age: 54 Year
  Sex: Female
  Weight: 127.12 kg

DRUGS (16)
  1. BENLYSTA [Suspect]
     Indication: SYSTEMIC LUPUS ERYTHEMATOSUS
     Dosage: 120MG CYCLIC
     Route: 042
     Dates: start: 20110923
  2. PLAQUENIL [Concomitant]
     Dosage: 400MG PER DAY
     Route: 048
  3. PROTONIX [Concomitant]
     Dosage: 40MG PER DAY
     Route: 048
  4. SYNTHROID [Concomitant]
     Dosage: 200MCG PER DAY
     Route: 048
  5. SPIRONOLACTONE [Concomitant]
     Dosage: 50MG PER DAY
     Route: 048
  6. CELEXA [Concomitant]
     Dosage: 20MG PER DAY
     Route: 048
  7. CYMBALTA [Concomitant]
     Dosage: 90MG PER DAY
     Route: 048
  8. WELLBUTRIN [Concomitant]
     Dosage: 300MG PER DAY
     Route: 048
  9. CARAFATE [Concomitant]
     Dosage: 1G PER DAY
     Route: 048
  10. VYTORIN [Concomitant]
     Route: 048
  11. TRAZODONE [Concomitant]
     Dosage: 200MG PER DAY
     Route: 048
  12. TRAMADOL [Concomitant]
  13. FUROSEMIDE [Concomitant]
  14. PERCOCET [Concomitant]
  15. BENADRYL [Concomitant]
     Dosage: 50MG PER DAY
     Route: 048
  16. CELLCEPT [Concomitant]
     Dosage: 500MG PER DAY
     Route: 048

REACTIONS (10)
  - Diarrhoea [Not Recovered/Not Resolved]
  - Hair texture abnormal [Not Recovered/Not Resolved]
  - Pain in extremity [Unknown]
  - Insomnia [Unknown]
  - Oropharyngeal pain [Unknown]
  - Nausea [Unknown]
  - Headache [Unknown]
  - Migraine [Unknown]
  - Malaise [Unknown]
  - Nasopharyngitis [Unknown]
